FAERS Safety Report 5476217-4 (Version None)
Quarter: 2007Q4

REPORT INFORMATION
  Report Type: 
  Country: None (occurrence: None)
  Receive Date: 20071003
  Receipt Date: 20071001
  Transmission Date: 20080405
  Serious: Yes (Hospitalization, Other)
  Sender: FDA-Public Use
  Company Number: AU-BRISTOL-MYERS SQUIBB COMPANY-13388574

PATIENT
  Age: 53 Year
  Sex: Male

DRUGS (2)
  1. DASATINIB [Suspect]
     Indication: CHRONIC MYELOID LEUKAEMIA
     Dosage: INTERRUPT: 31MAY06
     Route: 048
     Dates: start: 20050610
  2. CARBIMAZOLE [Concomitant]

REACTIONS (5)
  - CARDIAC FAILURE CONGESTIVE [None]
  - CARDIOMYOPATHY [None]
  - GOITRE [None]
  - METASTATIC SQUAMOUS CELL CARCINOMA [None]
  - PLEURAL EFFUSION [None]
